FAERS Safety Report 9267616 (Version 1)
Quarter: 2013Q2

REPORT INFORMATION
  Report Type: Spontaneous
  Country: US (occurrence: US)
  Receive Date: 20130502
  Receipt Date: 20130502
  Transmission Date: 20140414
  Serious: No
  Sender: FDA-Public Use
  Company Number: US-PFIZER INC-2013138014

PATIENT
  Sex: Female

DRUGS (1)
  1. CHANTIX [Suspect]
     Dosage: UNK

REACTIONS (7)
  - Depression [Unknown]
  - Mood swings [Unknown]
  - Agitation [Unknown]
  - Memory impairment [Unknown]
  - Restlessness [Unknown]
  - Abnormal behaviour [Unknown]
  - Anger [Unknown]
